FAERS Safety Report 25987707 (Version 1)
Quarter: 2025Q4

REPORT INFORMATION
  Report Type: Spontaneous
  Country: JP (occurrence: JP)
  Receive Date: 20251103
  Receipt Date: 20251103
  Transmission Date: 20260118
  Serious: Yes (Death, Hospitalization)
  Sender: MERCK SHARP & DOHME LLC
  Company Number: JP-009507513-2343801

PATIENT
  Age: 78 Year
  Sex: Male
  Weight: 53.7 kg

DRUGS (12)
  1. KEYTRUDA [Suspect]
     Active Substance: PEMBROLIZUMAB
     Indication: Malignant neoplasm of renal pelvis
     Dosage: DAILY DOSAGE (DOSE ? FREQUENCY): 200 MG ONCE
     Route: 042
     Dates: start: 20250423, end: 20250611
  2. PADCEV [Suspect]
     Active Substance: ENFORTUMAB VEDOTIN-EJFV
     Indication: Malignant neoplasm of renal pelvis
     Dosage: DAILY DOSAGE (DOSE ? FREQUENCY): 65 MG ONCE
     Route: 042
     Dates: start: 20250423, end: 20250611
  3. Silodosin Tablets 4 mg [Concomitant]
     Dosage: STARTED BY THE PREVIOUS PHYSICIAN
     Route: 048
     Dates: end: 20250908
  4. Dutasteride Capsules 0.5mgAV [Concomitant]
     Dosage: STARTED BY THE PREVIOUS PHYSICIAN
     Route: 048
     Dates: end: 20250908
  5. Sodium Chloride (For oral) [Concomitant]
     Route: 048
     Dates: start: 20250408, end: 20250715
  6. NAILIN Capsules 100mg [Concomitant]
     Route: 048
     Dates: start: 20250620, end: 20250828
  7. Amlodipine Tablets 2.5 mg [Concomitant]
     Dosage: STARTED BY THE PREVIOUS PHYSICIAN
     Route: 048
     Dates: end: 20250826
  8. Valsartan Tablets 40 mg [Concomitant]
     Dosage: STARTED BY THE PREVIOUS PHYSICIAN
     Route: 048
     Dates: end: 20250826
  9. Metformin Hydrochloride Tablets 250 mg [Concomitant]
     Dosage: STARTED BY THE PREVIOUS PHYSICIAN
     Route: 048
     Dates: end: 20250625
  10. KRACIE Hangekobokuto Extract Fine Granules [Concomitant]
     Route: 048
     Dates: end: 20250625
  11. SUINY Tablets 100 mg [Concomitant]
     Dosage: STARTED BY THE PREVIOUS PHYSICIAN
     Route: 048
     Dates: end: 20250625
  12. Rabeprazole Sodium Tablets 10 mg [Concomitant]
     Dosage: STARTED BY THE PREVIOUS PHYSICIAN
     Dates: end: 20250908

REACTIONS (1)
  - Interstitial lung disease [Fatal]

NARRATIVE: CASE EVENT DATE: 20250625
